FAERS Safety Report 13442125 (Version 2)
Quarter: 2017Q2

REPORT INFORMATION
  Report Type: Spontaneous
  Country: US (occurrence: US)
  Receive Date: 20170413
  Receipt Date: 20170421
  Transmission Date: 20170830
  Serious: Yes (Hospitalization)
  Sender: FDA-Public Use
  Company Number: US-BAYER-2017-070316

PATIENT
  Age: 25 Year
  Sex: Female
  Weight: 61.22 kg

DRUGS (1)
  1. MIRALAX [Suspect]
     Active Substance: POLYETHYLENE GLYCOL 3350
     Indication: GASTROINTESTINAL DISORDER
     Dosage: 1 DF, QD
     Route: 048

REACTIONS (21)
  - Insomnia [Unknown]
  - Dyspnoea [Unknown]
  - Chest pain [Unknown]
  - Product use issue [Unknown]
  - Mental disorder [Unknown]
  - Fatigue [Unknown]
  - Asthenia [Unknown]
  - Headache [Unknown]
  - Clumsiness [Unknown]
  - Depression [Unknown]
  - Aggression [Unknown]
  - Apathy [Unknown]
  - Memory impairment [Unknown]
  - Aphasia [Unknown]
  - Paranoia [Unknown]
  - Dizziness [Unknown]
  - Confusional state [Unknown]
  - Muscle spasms [Unknown]
  - Anxiety [Unknown]
  - Anger [Unknown]
  - Arthralgia [Unknown]

NARRATIVE: CASE EVENT DATE: 2015
